FAERS Safety Report 14361969 (Version 1)
Quarter: 2018Q1

REPORT INFORMATION
  Report Type: Spontaneous
  Country: US (occurrence: US)
  Receive Date: 20180108
  Receipt Date: 20180108
  Transmission Date: 20180509
  Serious: No
  Sender: FDA-Public Use
  Company Number: US-AUROBINDO-AUR-APU-2017-40962

PATIENT
  Sex: Female

DRUGS (1)
  1. OXYCODONE HYDROCHLORIDE TABLETS USP 30 MG [Suspect]
     Active Substance: OXYCODONE HYDROCHLORIDE
     Indication: KNEE OPERATION
     Dosage: EVERY FOUR HOURS (05-06 PILLS)
     Dates: start: 20170915

REACTIONS (2)
  - Tongue disorder [Not Recovered/Not Resolved]
  - Pruritus [Not Recovered/Not Resolved]
